FAERS Safety Report 8379684-1 (Version None)
Quarter: 2012Q2

REPORT INFORMATION
  Report Type: 
  Country: None (occurrence: None)
  Receive Date: 20120523
  Receipt Date: 20120517
  Transmission Date: 20120825
  Serious: Yes (Other)
  Sender: FDA-Public Use
  Company Number: JP-ASTELLAS-2012JP001575

PATIENT
  Sex: Male
  Weight: 59.8 kg

DRUGS (10)
  1. PREDNISOLONE [Suspect]
     Indication: RHEUMATOID ARTHRITIS
     Dosage: 10 MG, UID/QD
     Route: 048
     Dates: start: 20080101, end: 20110901
  2. SULFAMETHOXAZOLE AND TRIMETHOPRIM [Suspect]
     Dosage: 1 DF, QOD
     Route: 048
     Dates: start: 20100316, end: 20110901
  3. PROGRAF [Suspect]
     Indication: RHEUMATOID ARTHRITIS
     Dosage: 1.0 MG, UNKNOWN/D
     Route: 048
     Dates: start: 20110711, end: 20110725
  4. OLOPATADINE HCL [Suspect]
     Indication: RHINITIS ALLERGIC
     Dosage: 5 MG, UID/QD
     Route: 048
  5. PROGRAF [Suspect]
     Dosage: 1.5 MG, UID/QD
     Route: 048
     Dates: start: 20110530, end: 20110710
  6. VOLTAREN [Suspect]
     Indication: RHEUMATOID ARTHRITIS
     Dosage: 25 MG, TID
     Route: 048
     Dates: start: 20110221
  7. ALENDRONATE SODIUM [Suspect]
     Dosage: 35 MG, WEEKLY
     Route: 048
     Dates: start: 20100316
  8. MICARDIS [Suspect]
     Indication: HYPERTENSION
     Dosage: 40 MG, UID/QD
     Route: 048
     Dates: start: 20100329
  9. LANSOPRAZOLE [Suspect]
     Dosage: 15 MG, UID/QD
     Route: 048
  10. ENBREL [Concomitant]
     Indication: RHEUMATOID ARTHRITIS
     Dosage: 75 MG, UID/QD
     Route: 058
     Dates: start: 20110801, end: 20110822

REACTIONS (2)
  - INTERSTITIAL LUNG DISEASE [None]
  - RENAL IMPAIRMENT [None]
